FAERS Safety Report 26186642 (Version 1)
Quarter: 2025Q4

REPORT INFORMATION
  Report Type: Spontaneous
  Country: US (occurrence: None)
  Receive Date: 20251219
  Receipt Date: 20251219
  Transmission Date: 20260117
  Serious: Yes (Hospitalization)
  Sender: FDA-CTU
  Company Number: None

PATIENT
  Age: 77 Year
  Sex: Male
  Weight: 95 kg

DRUGS (3)
  1. FLUOXETINE HYDROCHLORIDE [Suspect]
     Active Substance: FLUOXETINE HYDROCHLORIDE
     Indication: Depression
     Dosage: FREQUENCY : DAILY;
     Route: 048
     Dates: start: 20250207, end: 20250528
  2. HYDROCHLOROTHIAZIDE [Suspect]
     Active Substance: HYDROCHLOROTHIAZIDE
  3. LISINOPRIL [Suspect]
     Active Substance: LISINOPRIL

REACTIONS (4)
  - Hyponatraemia [None]
  - Constipation [None]
  - Urinary retention [None]
  - Hypophagia [None]

NARRATIVE: CASE EVENT DATE: 20250528
